FAERS Safety Report 22348518 (Version 7)
Quarter: 2023Q4

REPORT INFORMATION
  Report Type: Report from Study
  Country: GB (occurrence: GB)
  Receive Date: 20230522
  Receipt Date: 20231215
  Transmission Date: 20240110
  Serious: Yes (Other)
  Sender: FDA-Public Use
  Company Number: GB-SA-SAC20230419000122

PATIENT

DRUGS (49)
  1. DEXAMETHASONE [Suspect]
     Active Substance: DEXAMETHASONE
     Indication: Plasma cell myeloma refractory
     Dosage: 10 MG, OTHER;
     Route: 065
     Dates: start: 20230324, end: 20230324
  2. DEXAMETHASONE [Suspect]
     Active Substance: DEXAMETHASONE
     Dosage: 20 MG;
     Route: 065
     Dates: start: 20221221, end: 20221221
  3. DEXAMETHASONE [Suspect]
     Active Substance: DEXAMETHASONE
     Dosage: 10 MG, BI-WEEKLY;
     Route: 065
     Dates: start: 20230420
  4. DEXAMETHASONE [Suspect]
     Active Substance: DEXAMETHASONE
     Dosage: 20 MG;
     Route: 065
     Dates: start: 20230228, end: 20230228
  5. DEXAMETHASONE [Suspect]
     Active Substance: DEXAMETHASONE
     Dosage: 10 MG, OTHER;
     Route: 065
     Dates: start: 20230602, end: 20230602
  6. DEXAMETHASONE [Suspect]
     Active Substance: DEXAMETHASONE
     Dosage: 10 MG, QD
     Route: 065
     Dates: start: 20230518, end: 20230522
  7. DEXAMETHASONE [Suspect]
     Active Substance: DEXAMETHASONE
     Dosage: 10 MG, BI-WEEKLY;
     Route: 065
     Dates: start: 20230727, end: 20230810
  8. DEXAMETHASONE [Suspect]
     Active Substance: DEXAMETHASONE
     Dosage: 40 MG, 1 DOSE WEEKLY, 20 MG, BIW
     Route: 065
     Dates: start: 20221222, end: 20230227
  9. DEXAMETHASONE [Suspect]
     Active Substance: DEXAMETHASONE
     Dosage: 10 MG, OTHER;
     Route: 065
     Dates: start: 20230504, end: 20230504
  10. DEXAMETHASONE [Suspect]
     Active Substance: DEXAMETHASONE
     Dosage: 20 MG, 1 DOSE WEEKLY, 10 MG, BIW
     Route: 065
     Dates: start: 20230921, end: 20231018
  11. DEXAMETHASONE [Suspect]
     Active Substance: DEXAMETHASONE
     Dosage: 10 MG, QD
     Route: 065
     Dates: start: 20230420, end: 20230425
  12. DEXAMETHASONE [Suspect]
     Active Substance: DEXAMETHASONE
     Dosage: 20 MG, 1 DOSE WEEKLY, 10 MG, BIW
     Route: 065
     Dates: start: 20230629, end: 20230726
  13. DEXAMETHASONE [Suspect]
     Active Substance: DEXAMETHASONE
     Dosage: 4 MG, 1 DOSE WEEKLY, 2 MG, BIW
     Route: 065
     Dates: start: 20230824, end: 20230907
  14. DEXAMETHASONE [Suspect]
     Active Substance: DEXAMETHASONE
     Dosage: 10 MG, 2 DOSE WEEKLY, 10 MG, BI-WEEKLY
     Route: 065
     Dates: start: 20230615, end: 20230622
  15. ISATUXIMAB [Suspect]
     Active Substance: ISATUXIMAB
     Indication: Plasma cell myeloma refractory
     Dosage: 10 MG/KG;
     Route: 065
     Dates: start: 20230228, end: 20230228
  16. ISATUXIMAB [Suspect]
     Active Substance: ISATUXIMAB
     Dosage: 10 MG/KG,
     Route: 065
     Dates: start: 20221221, end: 20221221
  17. ISATUXIMAB [Suspect]
     Active Substance: ISATUXIMAB
     Dosage: 10 MG/KG, OTHER;
     Route: 065
     Dates: start: 20230324, end: 20230324
  18. ISATUXIMAB [Suspect]
     Active Substance: ISATUXIMAB
     Dosage: 10 MG/KG, BI-WEEKLY;
     Route: 065
     Dates: start: 20230420, end: 20230517
  19. ISATUXIMAB [Suspect]
     Active Substance: ISATUXIMAB
     Dosage: 20 MG/KG, 1 DOSE WEEKLY, 10 MG/KG, BI-WEEKLY
     Route: 065
     Dates: start: 20230727, end: 20230823
  20. ISATUXIMAB [Suspect]
     Active Substance: ISATUXIMAB
     Dosage: 20 MG/KG, 1 DOSE WEEKLY, 10 MG/KG, BI-WEEKLY
     Route: 065
     Dates: start: 20230921, end: 20231018
  21. ISATUXIMAB [Suspect]
     Active Substance: ISATUXIMAB
     Dosage: 20 MG/KG, 1 DOSE WEEKLY, 10 MG/KG, BI-WEEKLY
     Route: 065
     Dates: start: 20230518, end: 20230614
  22. ISATUXIMAB [Suspect]
     Active Substance: ISATUXIMAB
     Dosage: 20 MG/KG, 1 DOSE WEEKLY, 10 MG/KG, BI-WEEKLY
     Route: 065
     Dates: start: 20230629, end: 20230726
  23. ISATUXIMAB [Suspect]
     Active Substance: ISATUXIMAB
     Dosage: 20 MG/KG, 1 DOSE WEEKLY, 10 MG/KG, BI-WEEKLY
     Route: 065
     Dates: start: 20230824, end: 20230920
  24. ISATUXIMAB [Suspect]
     Active Substance: ISATUXIMAB
     Dosage: 20 MG/KG, 1 DOSE WEEKLY, 10 MG/KG, BI-WEEKLY
     Route: 065
     Dates: start: 20230101, end: 20230227
  25. ISATUXIMAB [Suspect]
     Active Substance: ISATUXIMAB
     Dosage: 20 MG/KG, 1 DOSE WEEKLY, 10 MG/KG, BI-WEEKLY
     Route: 065
     Dates: start: 20230615, end: 20230622
  26. ISATUXIMAB [Suspect]
     Active Substance: ISATUXIMAB
     Dosage: 10 MG/KG, QW
     Route: 065
     Dates: start: 20221221, end: 20221230
  27. POMALIDOMIDE [Suspect]
     Active Substance: POMALIDOMIDE
     Indication: Plasma cell myeloma refractory
     Dosage: 2 MG, QD
     Route: 065
     Dates: start: 20221221, end: 20230110
  28. POMALIDOMIDE [Suspect]
     Active Substance: POMALIDOMIDE
     Dosage: 2 MG, QD
     Route: 065
     Dates: start: 20221221, end: 20230104
  29. POMALIDOMIDE [Suspect]
     Active Substance: POMALIDOMIDE
     Dosage: 2 MG, QD
     Route: 065
     Dates: start: 20230105, end: 20230227
  30. POMALIDOMIDE [Suspect]
     Active Substance: POMALIDOMIDE
     Dosage: 2 MG, QD
     Route: 065
     Dates: start: 20230727, end: 20230817
  31. POMALIDOMIDE [Suspect]
     Active Substance: POMALIDOMIDE
     Dosage: 2 MG, QD
     Route: 065
     Dates: start: 20230518, end: 20230619
  32. POMALIDOMIDE [Suspect]
     Active Substance: POMALIDOMIDE
     Dosage: 2 MG, QD
     Route: 065
     Dates: start: 20230824, end: 20230914
  33. POMALIDOMIDE [Suspect]
     Active Substance: POMALIDOMIDE
     Dosage: 2 MG, QD
     Route: 065
     Dates: start: 20230921, end: 20231004
  34. POMALIDOMIDE [Suspect]
     Active Substance: POMALIDOMIDE
     Dosage: 2 MG, QD
     Route: 065
     Dates: start: 20230629, end: 20230720
  35. POMALIDOMIDE [Suspect]
     Active Substance: POMALIDOMIDE
     Dosage: 2 MG, QD
     Route: 065
     Dates: start: 20230615, end: 20230622
  36. ACYCLOVIR [Concomitant]
     Active Substance: ACYCLOVIR
     Indication: Infection prophylaxis
     Dosage: UNK; ;
     Route: 065
     Dates: start: 20180124
  37. ALLOPURINOL [Concomitant]
     Active Substance: ALLOPURINOL
     Indication: Hyperuricaemia
     Dosage: UNK; ;
     Route: 065
     Dates: start: 20180124, end: 20230208
  38. APIXABAN [Concomitant]
     Active Substance: APIXABAN
     Indication: Thrombosis prophylaxis
     Dosage: UNK; ;
     Route: 065
     Dates: start: 20221221, end: 20230112
  39. ASPIRIN [Concomitant]
     Active Substance: ASPIRIN
     Indication: Thrombosis prophylaxis
     Dosage: UNK; ;
     Route: 065
     Dates: start: 20181019
  40. CHLORPHENIRAMINE MALEATE [Concomitant]
     Active Substance: CHLORPHENIRAMINE MALEATE
     Indication: Premedication
     Dosage: UNK, EVERY CYCLE; ;
     Route: 065
     Dates: start: 20221221
  41. COTRIMOXAZOLE [Concomitant]
     Active Substance: SULFAMETHOXAZOLE\TRIMETHOPRIM
     Indication: Prophylaxis
     Dosage: UNK; ;
     Route: 065
     Dates: start: 20180126
  42. DENOSUMAB [Concomitant]
     Active Substance: DENOSUMAB
     Indication: Bone disorder
     Dosage: UNK; ;
     Route: 065
     Dates: start: 20210505
  43. DOMPERIDONE [Concomitant]
     Active Substance: DOMPERIDONE
     Indication: Prophylaxis of nausea and vomiting
     Dosage: UNK; ;
     Route: 065
     Dates: start: 20180125
  44. DOMPERIDONE [Concomitant]
     Active Substance: DOMPERIDONE
     Dosage: UNK; ;
     Route: 065
     Dates: start: 20221221, end: 20221230
  45. FLUCONAZOLE [Concomitant]
     Active Substance: FLUCONAZOLE
     Indication: Infection prophylaxis
     Dosage: UNK; ;
     Route: 065
     Dates: start: 20180125
  46. LANSOPRAZOLE [Concomitant]
     Active Substance: LANSOPRAZOLE
     Indication: Gastrointestinal disorder prophylaxis
     Dosage: UNK, EVERY CYCLE; ;
     Route: 065
     Dates: start: 20180124
  47. MONTELUKAST [Concomitant]
     Active Substance: MONTELUKAST SODIUM
     Indication: Premedication
     Dosage: UNK, OTHER (C1 ); ;
     Route: 065
     Dates: start: 20221221, end: 20230111
  48. ACETAMINOPHEN [Concomitant]
     Active Substance: ACETAMINOPHEN
     Indication: Premedication
     Dosage: UNK, EVERY CYCLE; ;
     Route: 065
     Dates: start: 20221221
  49. CEFTAZIDIME [Concomitant]
     Active Substance: CEFTAZIDIME
     Indication: Product used for unknown indication
     Dosage: UNK
     Route: 065
     Dates: start: 20231019, end: 20231019

REACTIONS (12)
  - Thrombocytopenia [Recovered/Resolved]
  - Neutropenia [Recovered/Resolved]
  - Respiratory tract infection [Recovered/Resolved]
  - C-reactive protein increased [Recovered/Resolved]
  - C-reactive protein increased [Recovered/Resolved]
  - Anaemia [Recovered/Resolved]
  - Fatigue [Not Recovered/Not Resolved]
  - Dyspnoea [Not Recovered/Not Resolved]
  - Platelet count decreased [Recovered/Resolved]
  - Arthralgia [Recovered/Resolved]
  - Musculoskeletal chest pain [Recovered/Resolved]
  - Neutrophil count decreased [Recovered/Resolved]

NARRATIVE: CASE EVENT DATE: 20230105
